FAERS Safety Report 13967372 (Version 2)
Quarter: 2017Q4

REPORT INFORMATION
  Report Type: Spontaneous
  Country: US (occurrence: US)
  Receive Date: 20170914
  Receipt Date: 20171120
  Transmission Date: 20180320
  Serious: No
  Sender: FDA-Public Use
  Company Number: US-PFIZER INC-2017394908

PATIENT
  Age: 62 Year
  Sex: Female

DRUGS (1)
  1. XELJANZ XR [Suspect]
     Active Substance: TOFACITINIB CITRATE
     Dosage: 11 MG, DAILY

REACTIONS (10)
  - Joint swelling [Unknown]
  - Paraesthesia [Unknown]
  - Hypoaesthesia [Unknown]
  - Joint range of motion decreased [Unknown]
  - Joint stiffness [Unknown]
  - Arthralgia [Unknown]
  - Musculoskeletal stiffness [Unknown]
  - Pain in extremity [Unknown]
  - Asthenia [Unknown]
  - Nodal osteoarthritis [Unknown]
